FAERS Safety Report 19154386 (Version 3)
Quarter: 2022Q2

REPORT INFORMATION
  Report Type: Report from Study
  Country: US (occurrence: US)
  Receive Date: 20210419
  Receipt Date: 20220404
  Transmission Date: 20220721
  Serious: Yes (Other)
  Sender: FDA-Public Use
  Company Number: US-PFIZER INC-2021388755

PATIENT
  Age: 8 Year
  Sex: Female
  Weight: 26.9 kg

DRUGS (4)
  1. VINCRISTINE SULFATE [Suspect]
     Active Substance: VINCRISTINE SULFATE
     Indication: Embryonal rhabdomyosarcoma
     Dosage: IV OVER 1 MINUTE OR INFUSION VIA MINIBAG ON DAYS 1, 8, AND 15.
     Route: 042
     Dates: start: 20210209, end: 20210329
  2. TEMSIROLIMUS [Suspect]
     Active Substance: TEMSIROLIMUS
     Indication: Embryonal rhabdomyosarcoma
     Dosage: IV OVER 30-60 MINUTES ON DAYS 1, 8, AND 15
     Route: 042
     Dates: start: 20210209
  3. CYCLOPHOSPHAMIDE [Suspect]
     Active Substance: CYCLOPHOSPHAMIDE
     Indication: Embryonal rhabdomyosarcoma
     Dosage: 1200MG/M2 OR PER PROTOCOL ON D1 OF C1+3
     Route: 042
     Dates: start: 20210209
  4. DACTINOMYCIN [Suspect]
     Active Substance: DACTINOMYCIN
     Indication: Embryonal rhabdomyosarcoma
     Dosage: 0.05MG/KG OR PER PROTOCOL ON D1 OF C1+3
     Dates: start: 20210209

REACTIONS (2)
  - Eyelid ptosis [Not Recovered/Not Resolved]
  - Neurotoxicity [Not Recovered/Not Resolved]

NARRATIVE: CASE EVENT DATE: 20210403
